FAERS Safety Report 10257306 (Version 2)
Quarter: 2014Q2

REPORT INFORMATION
  Report Type: Spontaneous
  Country: US (occurrence: US)
  Receive Date: 20140625
  Receipt Date: 20140625
  Transmission Date: 20141212
  Serious: No
  Sender: FDA-Public Use
  Company Number: US-ASTRAZENECA-2012SE28134

PATIENT
  Age: 54 Year
  Sex: Female
  Weight: 113.4 kg

DRUGS (4)
  1. NEXIUM [Suspect]
     Route: 048
  2. PRILOSEC OTC [Suspect]
     Indication: GASTROOESOPHAGEAL REFLUX DISEASE
     Route: 048
     Dates: start: 1995, end: 2000
  3. ROLAIDS [Concomitant]
     Indication: GASTROOESOPHAGEAL REFLUX DISEASE
  4. TUMS [Concomitant]
     Indication: GASTROOESOPHAGEAL REFLUX DISEASE

REACTIONS (2)
  - Dyspepsia [Recovered/Resolved]
  - Drug ineffective [Unknown]
